FAERS Safety Report 10507626 (Version 1)
Quarter: 2014Q4

REPORT INFORMATION
  Report Type: Spontaneous
  Country: US (occurrence: US)
  Receive Date: 20141009
  Receipt Date: 20141009
  Transmission Date: 20150528
  Serious: No
  Sender: FDA-Public Use
  Company Number: US-PFIZER INC-2014273769

PATIENT
  Age: 66 Year
  Sex: Female
  Weight: 125 kg

DRUGS (5)
  1. PROCARDIA XL [Suspect]
     Active Substance: NIFEDIPINE
     Indication: CARDIAC DISORDER
     Dosage: 60 MG, UNK
     Dates: start: 2011
  2. XALATAN [Concomitant]
     Active Substance: LATANOPROST
  3. DIOVAN [Concomitant]
     Active Substance: VALSARTAN
  4. CELEBREX [Concomitant]
     Active Substance: CELECOXIB
  5. LOVASTATIN. [Concomitant]
     Active Substance: LOVASTATIN

REACTIONS (2)
  - Blood pressure increased [Unknown]
  - Oxygen saturation decreased [Unknown]

NARRATIVE: CASE EVENT DATE: 20140626
